FAERS Safety Report 13252234 (Version 1)
Quarter: 2017Q1

REPORT INFORMATION
  Report Type: Spontaneous
  Country: ES (occurrence: ES)
  Receive Date: 20170220
  Receipt Date: 20170220
  Transmission Date: 20170428
  Serious: Yes (Other)
  Sender: FDA-Public Use
  Company Number: ES-BRACCO-001619

PATIENT
  Age: 45 Year
  Sex: Male
  Weight: 89 kg

DRUGS (1)
  1. PROHANCE [Suspect]
     Active Substance: GADOTERIDOL
     Indication: NUCLEAR MAGNETIC RESONANCE IMAGING SPINAL
     Dosage: 15ML
     Route: 042
     Dates: start: 20150317, end: 20150317

REACTIONS (1)
  - Feeling hot [Recovered/Resolved]

NARRATIVE: CASE EVENT DATE: 20150317
